FAERS Safety Report 25601877 (Version 1)
Quarter: 2025Q3

REPORT INFORMATION
  Report Type: Spontaneous
  Country: US (occurrence: None)
  Receive Date: 20250723
  Receipt Date: 20250723
  Transmission Date: 20251020
  Serious: Yes (Death)
  Sender: FDA-CTU
  Company Number: None

PATIENT
  Age: 29 Year
  Sex: Female
  Weight: 81.6 kg

DRUGS (8)
  1. YESCARTA [Suspect]
     Active Substance: AXICABTAGENE CILOLEUCEL
     Indication: B-cell lymphoma
     Route: 042
     Dates: start: 20250715
  2. ETOPOSIDE [Suspect]
     Active Substance: ETOPOSIDE
  3. PREDNISONE [Suspect]
     Active Substance: PREDNISONE
  4. VINCRISTINE [Suspect]
     Active Substance: VINCRISTINE
  5. CYCLOPHOSPHAMIDE [Suspect]
     Active Substance: CYCLOPHOSPHAMIDE
  6. DOXORUBICIN [Suspect]
     Active Substance: DOXORUBICIN
  7. RITUXIMAB [Suspect]
     Active Substance: RITUXIMAB
  8. FLUDARABINE [Suspect]
     Active Substance: FLUDARABINE PHOSPHATE

REACTIONS (6)
  - Cytokine release syndrome [None]
  - Immune effector cell-associated neurotoxicity syndrome [None]
  - Brain oedema [None]
  - Brain herniation [None]
  - Brain stem haemorrhage [None]
  - Brain death [None]

NARRATIVE: CASE EVENT DATE: 20250720
